FAERS Safety Report 8112958-8 (Version None)
Quarter: 2012Q1

REPORT INFORMATION
  Report Type: 
  Country: None (occurrence: None)
  Receive Date: 20120203
  Receipt Date: 20120127
  Transmission Date: 20120608
  Serious: Yes (Life-Threatening, Hospitalization, Disabling)
  Sender: FDA-Public Use
  Company Number: US-MERCK-1201USA01299

PATIENT
  Age: 20 Year
  Sex: Male
  Weight: 87 kg

DRUGS (7)
  1. ISENTRESS [Suspect]
     Indication: ACQUIRED IMMUNODEFICIENCY SYNDROME
     Route: 048
     Dates: start: 20110712, end: 20110801
  2. BACTRIM [Concomitant]
     Indication: PNEUMOCYSTIS JIROVECI PNEUMONIA
     Route: 065
  3. ISENTRESS [Suspect]
     Indication: HIV INFECTION
     Route: 048
     Dates: start: 20110712, end: 20110801
  4. TRUVADA [Suspect]
     Indication: HIV INFECTION
     Route: 065
     Dates: start: 20110101, end: 20110801
  5. RANITIDINE [Suspect]
     Route: 065
  6. DAPSONE [Suspect]
     Indication: HIV INFECTION
     Route: 065
     Dates: start: 20110101, end: 20110801
  7. AZITHROMYCIN [Concomitant]
     Route: 065

REACTIONS (6)
  - LEUKOCYTOSIS [None]
  - IMPETIGO [None]
  - CELLULITIS [None]
  - SWELLING [None]
  - PYREXIA [None]
  - RASH GENERALISED [None]
